FAERS Safety Report 6740420-3 (Version None)
Quarter: 2010Q2

REPORT INFORMATION
  Report Type: 
  Country: None (occurrence: None)
  Receive Date: 20100521
  Receipt Date: 20100517
  Transmission Date: 20101027
  Serious: Yes (Hospitalization)
  Sender: FDA-Public Use
  Company Number: 2010SP027827

PATIENT
  Age: 60 Year
  Sex: Male

DRUGS (5)
  1. DESLORATADINE [Suspect]
     Indication: INFLUENZA
     Dosage: PO
     Route: 048
  2. RABEPRAZOLE SODIUM [Suspect]
     Indication: GASTROOESOPHAGEAL REFLUX DISEASE
     Dosage: PO
     Route: 048
  3. EXOMUC (ACETYLCYSSTEINE) [Suspect]
     Indication: INFLUENZA
     Dosage: PO
     Route: 048
  4. POLERY ADULTE (PULERY) 01710801/) [Suspect]
     Indication: INFLUENZA
     Dosage: PO
     Route: 048
  5. TRIMEBUTINE (TRIMESBUTINE) [Suspect]
     Indication: INTESTINAL FUNCTIONAL DISORDER
     Dosage: PO
     Route: 048

REACTIONS (2)
  - CHOLESTASIS [None]
  - CYTOLYTIC HEPATITIS [None]
